FAERS Safety Report 9184369 (Version 1)
Quarter: 2012Q4

REPORT INFORMATION
  Report Type: 
  Country: GB (occurrence: GB)
  Receive Date: 20121031
  Receipt Date: 20121031
  Transmission Date: 20130627
  Serious: Yes (Hospitalization)
  Sender: FDA-Public Use
  Company Number: GB-ELI_LILLY_AND_COMPANY-GB201210006451

PATIENT
  Age: 54 Year
  Sex: Male

DRUGS (5)
  1. GEMCITABINE HYDROCHLORIDE [Suspect]
     Indication: TRANSITIONAL CELL CARCINOMA
     Dosage: 2000 mg, UNK
     Route: 042
     Dates: start: 20120424
  2. CISPLATIN [Concomitant]
     Indication: TRANSITIONAL CELL CARCINOMA
     Dosage: 140 mg, UNK
     Route: 042
     Dates: start: 20120424
  3. SUNITINIB MALATE [Concomitant]
     Indication: TRANSITIONAL CELL CARCINOMA
     Dosage: 25 mg, UNK
     Dates: start: 20120403
  4. ZOMORPH [Concomitant]
     Dosage: 60 mg, bid
     Route: 048
     Dates: start: 20120403
  5. LANSOPRAZOLE [Concomitant]
     Dosage: 30 mg, qd
     Route: 048
     Dates: start: 20120417

REACTIONS (4)
  - Lower respiratory tract infection [Recovered/Resolved]
  - Body temperature increased [Recovered/Resolved]
  - Vomiting [Recovered/Resolved]
  - Diarrhoea [Recovered/Resolved]
